FAERS Safety Report 7482921-9 (Version None)
Quarter: 2011Q2

REPORT INFORMATION
  Report Type: 
  Country: None (occurrence: None)
  Receive Date: 20110516
  Receipt Date: 20110224
  Transmission Date: 20111010
  Serious: No
  Sender: FDA-Public Use
  Company Number: US-BAYER-2011-018505

PATIENT

DRUGS (2)
  1. EXTRA STRENGTH TYLENOL [Concomitant]
     Indication: INTERVERTEBRAL DISC PROTRUSION
     Dosage: UNK
     Dates: start: 20110201
  2. ALEVE (CAPLET) [Suspect]
     Indication: INTERVERTEBRAL DISC PROTRUSION
     Dosage: 220 MG, BID
     Route: 048
     Dates: start: 20110201, end: 20110201

REACTIONS (3)
  - DEHYDRATION [None]
  - FOREIGN BODY SENSATION IN EYES [None]
  - ABNORMAL SENSATION IN EYE [None]
